FAERS Safety Report 4612619-3 (Version None)
Quarter: 2005Q1

REPORT INFORMATION
  Report Type: 
  Country: None (occurrence: None)
  Receive Date: 20050316
  Receipt Date: 20050316
  Transmission Date: 20050727
  Serious: Yes (Other)
  Sender: FDA-Public Use
  Company Number: None

PATIENT
  Age: 48 Year
  Sex: Female
  Weight: 112.4921 kg

DRUGS (1)
  1. ROXICET [Suspect]
     Indication: PAIN
     Dosage: 4 DAY ORAL
     Route: 048
     Dates: start: 20050201, end: 20050314

REACTIONS (2)
  - DRUG LEVEL DECREASED [None]
  - PHARMACEUTICAL PRODUCT COMPLAINT [None]
